FAERS Safety Report 4823940-8 (Version None)
Quarter: 2005Q4

REPORT INFORMATION
  Report Type: 
  Country: None (occurrence: None)
  Receive Date: 20051107
  Receipt Date: 20051027
  Transmission Date: 20060501
  Serious: Yes (Other)
  Sender: FDA-Public Use
  Company Number: 2005142933

PATIENT
  Age: 67 Year
  Sex: Male
  Weight: 90.2658 kg

DRUGS (6)
  1. NORVASC [Suspect]
     Indication: HYPERTENSION
     Dosage: ORAL
     Route: 048
  2. ZYRTEC [Suspect]
     Indication: MULTIPLE ALLERGIES
     Dosage: AS NEEDED, ORAL
     Route: 048
  3. VYTORIN [Suspect]
     Indication: BLOOD CHOLESTEROL INCREASED
     Dosage: ORAL
     Route: 048
     Dates: start: 20050101, end: 20050101
  4. HYDROCHLOROTHIAZIDE [Suspect]
     Indication: HYPERTENSION
     Dosage: ORAL
     Route: 048
     Dates: end: 20050101
  5. DRUG, UNSPECIFIED (DRUG, UNSPECIFIED) [Suspect]
     Indication: HYPERTENSION
     Dosage: ORAL
     Route: 048
     Dates: start: 20050101, end: 20050101
  6. ASPIRIN [Concomitant]

REACTIONS (10)
  - BACK PAIN [None]
  - BLOOD CHOLESTEROL INCREASED [None]
  - BLOOD PRESSURE SYSTOLIC INCREASED [None]
  - CAROTID ARTERY OCCLUSION [None]
  - CONSTIPATION [None]
  - DRUG INEFFECTIVE [None]
  - MULTIPLE ALLERGIES [None]
  - MUSCLE TIGHTNESS [None]
  - PHARMACEUTICAL PRODUCT COMPLAINT [None]
  - RASH [None]
